FAERS Safety Report 5917568-6 (Version None)
Quarter: 2008Q4

REPORT INFORMATION
  Report Type: 
  Country: None (occurrence: None)
  Receive Date: 20081014
  Receipt Date: 20081009
  Transmission Date: 20090506
  Serious: Yes (Hospitalization)
  Sender: FDA-Public Use
  Company Number: JP-BRISTOL-MYERS SQUIBB COMPANY-14321848

PATIENT
  Age: 60 Year
  Sex: Female
  Weight: 53 kg

DRUGS (15)
  1. ABATACEPT [Suspect]
     Indication: RHEUMATOID ARTHRITIS
     Dosage: DOSE REDUCED TO 500 MG, INTRAVENOUS DRIP FROM 09-JUN-2008 TO 09-JUN-2008.
     Route: 041
     Dates: start: 20070614
  2. ACTEMRA [Suspect]
     Indication: RHEUMATOID ARTHRITIS
     Dosage: FORM: INJ
     Route: 041
     Dates: start: 20080716
  3. METOLATE [Concomitant]
     Indication: RHEUMATOID ARTHRITIS
     Dosage: FORM: TAB
     Route: 048
     Dates: start: 20060420
  4. PREDONINE [Concomitant]
     Indication: RHEUMATOID ARTHRITIS
     Dosage: FORM: TAB
     Route: 048
     Dates: start: 20050908
  5. PREDNISOLONE [Concomitant]
     Indication: RHEUMATOID ARTHRITIS
     Dosage: FORM: TAB
     Route: 048
     Dates: start: 20050908
  6. PENTOIL [Concomitant]
     Indication: RHEUMATOID ARTHRITIS
     Dosage: FORM: TAB
     Route: 048
     Dates: start: 20050908
  7. VOLTAREN [Concomitant]
     Indication: SPINAL COMPRESSION FRACTURE
     Dosage: FORM: TAB
     Route: 048
     Dates: start: 20071129
  8. ALENDRONATE SODIUM [Concomitant]
     Indication: OSTEOPOROSIS
     Dosage: FORM: TAB
     Route: 048
     Dates: start: 20060327
  9. ALFACALCIDOL [Concomitant]
     Indication: OSTEOPOROSIS
     Route: 048
     Dates: start: 20070710
  10. OMEPRAZOLE [Concomitant]
     Indication: GASTRITIS
     Route: 048
     Dates: start: 20070309
  11. FOLIAMIN [Concomitant]
     Indication: PROPHYLAXIS
     Route: 048
     Dates: start: 20060327
  12. SELBEX [Concomitant]
     Indication: GASTRITIS
     Route: 048
     Dates: start: 20070220
  13. CYTOTEC [Concomitant]
     Indication: PROPHYLAXIS
     Route: 048
     Dates: start: 20071129
  14. ALLEGRA [Concomitant]
     Indication: URTICARIA CHRONIC
     Route: 048
     Dates: start: 20070529
  15. CATLEP [Concomitant]
     Indication: SPINAL COMPRESSION FRACTURE
     Route: 061
     Dates: start: 20070529

REACTIONS (6)
  - DRUG INEFFECTIVE [None]
  - DYSAESTHESIA [None]
  - HYPOAESTHESIA [None]
  - INTERVERTEBRAL DISC PROTRUSION [None]
  - NERVE ROOT COMPRESSION [None]
  - PAIN IN EXTREMITY [None]
